FAERS Safety Report 6734023-4 (Version None)
Quarter: 2010Q2

REPORT INFORMATION
  Report Type: 
  Country: None (occurrence: None)
  Receive Date: 20100520
  Receipt Date: 20100512
  Transmission Date: 20101027
  Serious: Yes (Other)
  Sender: FDA-Public Use
  Company Number: FR-ABBOTT-10P-056-0643842-00

PATIENT
  Sex: Female

DRUGS (5)
  1. NORVIR [Suspect]
     Indication: PROPHYLAXIS AGAINST HIV INFECTION
     Route: 048
     Dates: start: 20090623
  2. COMVIBIR [Concomitant]
     Indication: ANTIRETROVIRAL THERAPY
     Dosage: 2 TABLET DAILY
     Route: 048
     Dates: start: 20090623
  3. INVIRASE [Concomitant]
     Indication: ANTIRETROVIRAL THERAPY
     Dosage: 200MG DAILY
     Route: 048
     Dates: start: 20090623
  4. RETROVIR [Concomitant]
     Indication: HUMAN IMMUNODEFICIENCY VIRUS TRANSMISSION
     Route: 042
     Dates: start: 20091220
  5. RETROVIR [Concomitant]
     Indication: PROPHYLAXIS

REACTIONS (4)
  - NECROSIS ISCHAEMIC [None]
  - PLACENTAL INFARCTION [None]
  - PLACENTAL INSUFFICIENCY [None]
  - THROMBOSIS [None]
